FAERS Safety Report 9267507 (Version 2)
Quarter: 2013Q2

REPORT INFORMATION
  Report Type: Spontaneous
  Country: US (occurrence: US)
  Receive Date: 20130502
  Receipt Date: 20130516
  Transmission Date: 20140414
  Serious: Yes (Other)
  Sender: FDA-Public Use
  Company Number: US-PFIZER INC-2013135641

PATIENT
  Sex: Female

DRUGS (4)
  1. MORPHINE SULFATE [Suspect]
     Indication: COMPLEX REGIONAL PAIN SYNDROME
     Dosage: 1600 MG DAILY
     Route: 048
     Dates: start: 20110822
  2. MORPHINE SULFATE [Suspect]
     Indication: PAIN
     Dosage: 100 MG, UNK
     Route: 048
     Dates: start: 2008
  3. MORPHINE SULFATE [Suspect]
     Indication: COMPLEX REGIONAL PAIN SYNDROME
     Dosage: 30 MG, UNK
  4. METFORMIN [Concomitant]
     Dosage: UNK

REACTIONS (8)
  - Complex regional pain syndrome [Unknown]
  - Dysstasia [Unknown]
  - Stress [Unknown]
  - Crying [Unknown]
  - Pain [Unknown]
  - Depressed mood [Unknown]
  - Somnolence [Unknown]
  - Drug ineffective [Unknown]
